FAERS Safety Report 8402764-9 (Version None)
Quarter: 2012Q2

REPORT INFORMATION
  Report Type: 
  Country: None (occurrence: None)
  Receive Date: 20120601
  Receipt Date: 20120522
  Transmission Date: 20120825
  Serious: Yes (Other)
  Sender: FDA-Public Use
  Company Number: US-ROCHE-1041950

PATIENT
  Sex: Male

DRUGS (4)
  1. COPEGUS [Suspect]
     Indication: HEPATITIS C
     Route: 048
     Dates: start: 20111114, end: 20120209
  2. TELAPREVIR [Suspect]
     Indication: HEPATITIS C
     Route: 065
     Dates: start: 20111114, end: 20120206
  3. PEGASYS [Suspect]
     Indication: HEPATITIS C
     Route: 065
     Dates: start: 20111114
  4. NEURONTIN [Concomitant]

REACTIONS (3)
  - ANAEMIA [None]
  - PAIN [None]
  - WHITE BLOOD CELL COUNT DECREASED [None]
